FAERS Safety Report 7479280-4 (Version None)
Quarter: 2011Q2

REPORT INFORMATION
  Report Type: 
  Country: None (occurrence: None)
  Receive Date: 20110513
  Receipt Date: 20110506
  Transmission Date: 20111010
  Serious: Yes (Other)
  Sender: FDA-Public Use
  Company Number: US-JNJFOC-20110505092

PATIENT
  Age: 40 Year
  Sex: Female

DRUGS (4)
  1. NAPROXEN [Concomitant]
     Route: 065
  2. ULTRAM [Suspect]
     Indication: NECK PAIN
     Route: 048
  3. ROBAXIN [Concomitant]
     Route: 065
  4. IMITREX [Concomitant]
     Route: 065

REACTIONS (1)
  - MYOPIA [None]
